FAERS Safety Report 6243265-6 (Version None)
Quarter: 2009Q2

REPORT INFORMATION
  Report Type: 
  Country: None (occurrence: None)
  Receive Date: 20090624
  Receipt Date: 20090622
  Transmission Date: 20091009
  Serious: Yes (Hospitalization)
  Sender: FDA-Public Use
  Company Number: FR-BRISTOL-MYERS SQUIBB COMPANY-14675094

PATIENT
  Age: 66 Year
  Sex: Female

DRUGS (2)
  1. ABILIFY [Suspect]
     Dates: start: 20090301
  2. EFFEXOR [Suspect]
     Dates: start: 20090301

REACTIONS (7)
  - AMNESIA [None]
  - FALL [None]
  - HYPERHIDROSIS [None]
  - MALAISE [None]
  - TONGUE BITING [None]
  - URINARY INCONTINENCE [None]
  - VISUAL IMPAIRMENT [None]
